FAERS Safety Report 10510711 (Version 1)
Quarter: 2014Q3

REPORT INFORMATION
  Report Type: Spontaneous
  Country: US (occurrence: None)
  Receive Date: 20140924
  Receipt Date: 20140924
  Transmission Date: 20150326
  Serious: Yes (Death)
  Sender: FDA-Public Use
  Company Number: 2013STPI000372

PATIENT
  Age: 50 Year
  Sex: Male

DRUGS (13)
  1. FLUOXETINE ( FLUOXETINE HYDROCHLORIDE) [Concomitant]
  2. ASPIRIN ( ACETYLSALICYLIC ACID) [Concomitant]
  3. NEXIUM ( ESOMEPRAZOLE SODIUM) [Concomitant]
  4. CALCIUM ( CALCIUM GLUCONATE, CALCIUM SACCHARATE) [Concomitant]
  5. LOVASTATIN. [Concomitant]
     Active Substance: LOVASTATIN
  6. MATULANE [Suspect]
     Active Substance: PROCARBAZINE HYDROCHLORIDE
     Indication: BRAIN NEOPLASM MALIGNANT
     Route: 048
     Dates: start: 20130802, end: 201309
  7. AVASTIN ( BEVACIZUMAB) [Concomitant]
  8. LAMOTRIGINE. [Concomitant]
     Active Substance: LAMOTRIGINE
  9. FISH OIL [Concomitant]
     Active Substance: FISH OIL
  10. VITAMIN D3 ( COLECALCIFEROL) [Concomitant]
  11. XALATAN ( LATANOPROST) [Concomitant]
  12. CEENU ( LOMUSTINE) [Concomitant]
  13. MULTIVITAMIN ( VITAMIN) [Concomitant]

REACTIONS (1)
  - Disease progression [None]

NARRATIVE: CASE EVENT DATE: 201309
